FAERS Safety Report 11360478 (Version 1)
Quarter: 2015Q3

REPORT INFORMATION
  Report Type: Report from Study
  Country: US (occurrence: US)
  Receive Date: 20150810
  Receipt Date: 20150810
  Transmission Date: 20151125
  Serious: No
  Sender: FDA-Public Use
  Company Number: PHEH2014US005925

PATIENT
  Age: 55 Year
  Sex: Female
  Weight: 70.3 kg

DRUGS (5)
  1. EXTAVIA [Suspect]
     Active Substance: INTERFERON BETA-1B
     Dosage: 0.3 MG, QOD
     Route: 058
     Dates: start: 201404
  2. EXTAVIA [Suspect]
     Active Substance: INTERFERON BETA-1B
     Indication: MULTIPLE SCLEROSIS
     Dosage: UNK
     Route: 058
     Dates: start: 201402
  3. EXTAVIA [Suspect]
     Active Substance: INTERFERON BETA-1B
     Dosage: 0.25 MG, QOD
     Route: 058
     Dates: start: 20140315
  4. BETASERON [Suspect]
     Active Substance: INTERFERON BETA-1B
     Dosage: UNK
     Route: 058
     Dates: start: 201304, end: 201402
  5. BETASERON [Suspect]
     Active Substance: INTERFERON BETA-1B
     Indication: MULTIPLE SCLEROSIS
     Dosage: UNK
     Route: 065

REACTIONS (14)
  - Injection site haemorrhage [Recovering/Resolving]
  - Influenza like illness [Not Recovered/Not Resolved]
  - Body temperature decreased [Unknown]
  - Stress [Not Recovered/Not Resolved]
  - Haemorrhagic diathesis [Not Recovered/Not Resolved]
  - Injection site erythema [Recovered/Resolved]
  - Injection site discolouration [Not Recovered/Not Resolved]
  - Feeling abnormal [Not Recovered/Not Resolved]
  - Hypoaesthesia [Not Recovered/Not Resolved]
  - Pain [Unknown]
  - Injection site bruising [Recovered/Resolved]
  - Injection site reaction [Not Recovered/Not Resolved]
  - Injection site injury [Not Recovered/Not Resolved]
  - Hepatic enzyme increased [Unknown]

NARRATIVE: CASE EVENT DATE: 201402
